FAERS Safety Report 5084827-1 (Version None)
Quarter: 2006Q3

REPORT INFORMATION
  Report Type: 
  Country: None (occurrence: None)
  Receive Date: 20060815
  Receipt Date: 20060802
  Transmission Date: 20061208
  Serious: Yes (Death, Life-Threatening, Hospitalization, Disabling)
  Sender: FDA-Public Use
  Company Number: 2006-02011

PATIENT
  Age: 68 Year
  Sex: Male
  Weight: 78 kg

DRUGS (5)
  1. VELCADE [Suspect]
     Indication: MULTIPLE MYELOMA
     Dosage: 1.30 MG/M2, INTRAVENOUS
     Route: 042
     Dates: start: 20041213, end: 20050107
  2. DEXAMETHASONE [Concomitant]
  3. FLUCONAZOLE [Concomitant]
  4. TRANEXAMIC ACID (TRANEXAMIC ACID) [Concomitant]
  5. VALACYCLOVIR [Concomitant]

REACTIONS (3)
  - NEUROPATHY PERIPHERAL [None]
  - ORTHOSTATIC HYPOTENSION [None]
  - PNEUMONIA [None]
